FAERS Safety Report 9464001 (Version 2)
Quarter: 2013Q3

REPORT INFORMATION
  Report Type: Spontaneous
  Country: US (occurrence: US)
  Receive Date: 20130819
  Receipt Date: 20130819
  Transmission Date: 20140515
  Serious: Yes (Other)
  Sender: FDA-Public Use
  Company Number: US-BRISTOL-MYERS SQUIBB COMPANY-17388463

PATIENT
  Age: 39 Year
  Sex: Female

DRUGS (6)
  1. REYATAZ [Suspect]
     Indication: HIV INFECTION
     Dates: start: 200605
  2. RITONAVIR [Suspect]
     Indication: HIV INFECTION
     Dates: start: 200605
  3. EPZICOM [Suspect]
     Indication: HIV INFECTION
     Dates: start: 200605
  4. RESTORIL [Concomitant]
     Indication: INSOMNIA
     Dates: start: 200912
  5. HYDROXYZINE [Concomitant]
     Indication: PRURITUS
     Dates: start: 200709
  6. FERROUS SULFATE [Concomitant]
     Route: 048

REACTIONS (1)
  - Tubulointerstitial nephritis [Unknown]
